FAERS Safety Report 6251528-3 (Version None)
Quarter: 2009Q2

REPORT INFORMATION
  Report Type: 
  Country: None (occurrence: None)
  Receive Date: 20090626
  Receipt Date: 20090626
  Transmission Date: 20091009
  Serious: No
  Sender: FDA-Public Use
  Company Number: None

PATIENT
  Age: 59 Year
  Sex: Female

DRUGS (2)
  1. NEXIUM [Suspect]
     Indication: GASTROOESOPHAGEAL REFLUX DISEASE
     Dosage: TAKE 1 CAPSULE DAILY
     Dates: start: 20090519
  2. NEXIUM [Suspect]
     Indication: HIATUS HERNIA
     Dosage: TAKE 1 CAPSULE DAILY
     Dates: start: 20090519

REACTIONS (4)
  - ABDOMINAL DISCOMFORT [None]
  - DYSGEUSIA [None]
  - PRODUCT ODOUR ABNORMAL [None]
  - PRODUCT TASTE ABNORMAL [None]
